FAERS Safety Report 8538830-7 (Version None)
Quarter: 2012Q2

REPORT INFORMATION
  Report Type: 
  Country: None (occurrence: None)
  Receive Date: 20120416
  Receipt Date: 20080909
  Transmission Date: 20120825
  Serious: Yes (Other)
  Sender: FDA-Public Use
  Company Number: PHEH2008US11681

PATIENT

DRUGS (1)
  1. DIOVAN [Suspect]
     Indication: RENAL DISORDER
     Dosage: 40 MG

REACTIONS (1)
  - HYPOTENSION [None]
